FAERS Safety Report 4606976-1 (Version None)
Quarter: 2005Q1

REPORT INFORMATION
  Report Type: 
  Country: None (occurrence: None)
  Receive Date: 20050310
  Receipt Date: 20050223
  Transmission Date: 20050727
  Serious: Yes (Other)
  Sender: FDA-Public Use
  Company Number: US-2005-002666

PATIENT
  Age: 63 Year
  Sex: Female

DRUGS (26)
  1. CLIMARA [Suspect]
     Indication: MENOPAUSAL SYMPTOMS
     Dosage: MG/D, TRANSDERMAL
     Route: 062
  2. PREMPRO [Suspect]
     Indication: MENOPAUSAL SYMPTOMS
  3. PROVERA [Suspect]
     Indication: MENOPAUSAL SYMPTOMS
  4. PREMARIN [Suspect]
     Indication: MENOPAUSAL SYMPTOMS
  5. ESTROGENS NOS (ESTROGENS NOS) [Suspect]
     Indication: MENOPAUSAL SYMPTOMS
  6. MEDROXYPROGESTERONE ACETATE [Suspect]
     Indication: MENOPAUSAL SYMPTOMS
  7. CYCRIN [Suspect]
     Indication: MENOPAUSAL SYMPTOMS
  8. AYGESTIN [Suspect]
     Indication: MENOPAUSAL SYMPTOMS
  9. PREMPHASE (PREMARIN;CYCRIN 14/14) [Suspect]
     Indication: MENOPAUSAL SYMPTOMS
  10. AYGESTIN [Suspect]
     Indication: MENOPAUSAL SYMPTOMS
  11. PREMPHASE (PREMARIN;CYCRIN 14/14) [Suspect]
     Indication: MENOPAUSAL SYMPTOMS
  12. FEMHRT [Suspect]
     Indication: MENOPAUSAL SYMPTOMS
  13. VAGIFEMA (ESTRADIOL) [Suspect]
     Indication: MENOPAUSAL SYMPTOMS
  14. ACTIVELLA [Suspect]
     Indication: MENOPAUSAL SYMPTOMS
  15. ESTRADIOL [Suspect]
     Indication: MENOPAUSAL SYMPTOMS
  16. CENESTIN [Suspect]
     Indication: MENOPAUSAL SYMPTOMS
  17. ESTRADERM [Suspect]
     Indication: MENOPAUSAL SYMPTOMS
  18. VIVELLE [Suspect]
     Indication: MENOPAUSAL SYMPTOMS
  19. COMBIPATCH [Suspect]
     Indication: MENOPAUSAL SYMPTOMS
  20. ESTRACE [Suspect]
     Indication: MENOPAUSAL SYMPTOMS
  21. ESTRATEST [Suspect]
     Indication: MENOPAUSAL SYMPTOMS
  22. ESTRATAB )ESTROGEMNS ESTERIFIED [Suspect]
     Indication: MENOPAUSAL SYMPTOMS
  23. OGEN [Suspect]
     Indication: MENOPAUSAL SYMPTOMS
  24. ESTROPIPATE [Suspect]
     Indication: MENOPAUSAL SYMPTOMS
  25. ORTHO TRI-CYCLEN [Suspect]
     Indication: MENOPAUSAL SYMPTOMS
  26. ORTHO-PREFEST (NORGESTIMATE, ESTRADIOL) [Suspect]
     Indication: MENOPAUSAL SYMPTOMS

REACTIONS (3)
  - ANXIETY [None]
  - BREAST CANCER FEMALE [None]
  - PAIN [None]
